FAERS Safety Report 10965299 (Version 2)
Quarter: 2015Q2

REPORT INFORMATION
  Report Type: Spontaneous
  Country: US (occurrence: US)
  Receive Date: 20150330
  Receipt Date: 20150410
  Transmission Date: 20150821
  Serious: No
  Sender: FDA-Public Use
  Company Number: US-PFIZER INC-2015104181

PATIENT
  Age: 72 Year
  Sex: Male
  Weight: 107 kg

DRUGS (4)
  1. SUTENT [Suspect]
     Active Substance: SUNITINIB MALATE
     Indication: RENAL CANCER METASTATIC
     Dosage: 25 MG, 1X/DAY (FOR 14 DAYS ON, THEN 7 OFF )
     Route: 048
     Dates: start: 201403
  2. CALCIUM [Concomitant]
     Active Substance: CALCIUM
  3. ZANTAC [Concomitant]
     Active Substance: RANITIDINE HYDROCHLORIDE
  4. MAGNESIUM [Concomitant]
     Active Substance: MAGNESIUM

REACTIONS (8)
  - Vision blurred [Not Recovered/Not Resolved]
  - Flatulence [Recovering/Resolving]
  - Visual impairment [Not Recovered/Not Resolved]
  - Abdominal distension [Recovering/Resolving]
  - Gastrointestinal pain [Unknown]
  - Anaemia [Unknown]
  - Diarrhoea [Recovering/Resolving]
  - Dyspepsia [Recovering/Resolving]

NARRATIVE: CASE EVENT DATE: 201502
